FAERS Safety Report 18330363 (Version 1)
Quarter: 2020Q3

REPORT INFORMATION
  Report Type: Spontaneous
  Country: DE (occurrence: DE)
  Receive Date: 20200930
  Receipt Date: 20200930
  Transmission Date: 20201103
  Serious: Yes (Hospitalization)
  Sender: FDA-Public Use
  Company Number: DE-MYLANLABS-2020M1081602

PATIENT
  Age: 77 Year
  Sex: Male
  Weight: 103 kg

DRUGS (13)
  1. TORASEMIDE [Suspect]
     Active Substance: TORSEMIDE
     Indication: PRODUCT USED FOR UNKNOWN INDICATION
     Dosage: 5 MILLIGRAM, 2?0?2?0, TABLETTEN
     Route: 048
  2. BISOPROLOL [Concomitant]
     Active Substance: BISOPROLOL
     Dosage: 5 MILLIGRAM, QD 0?1?0?0, TABLETTEN
     Route: 048
  3. PANTOPRAZOL                        /01263201/ [Concomitant]
     Active Substance: PANTOPRAZOLE
     Dosage: 40 MILLIGRAM, QD, 1?0?0?0, TABLETTEN
     Route: 048
  4. METAMIZOL                          /06276701/ [Concomitant]
     Active Substance: METAMIZOLE
     Dosage: 500 MILLIGRAM, TID, 1?1?1?0, TABLETTEN
     Route: 048
  5. APIXABAN [Concomitant]
     Active Substance: APIXABAN
     Dosage: 5 MILLIGRAM, BID, 1?0?1?0, TABLETTEN
     Route: 048
  6. PREGABALIN. [Concomitant]
     Active Substance: PREGABALIN
     Dosage: 75 MILLIGRAM, BID, 1?0?1?0, KAPSELN
     Route: 048
  7. CALCITRIOL. [Concomitant]
     Active Substance: CALCITRIOL
     Dosage: 0.5 MICROGRAM, QD, 1?0?0?0, TABLETTEN
     Route: 048
  8. HYDROCHLOROTHIAZIDE/RAMIPRIL [Suspect]
     Active Substance: HYDROCHLOROTHIAZIDE\RAMIPRIL
     Indication: PRODUCT USED FOR UNKNOWN INDICATION
     Dosage: 25/5 MG, QD, 0?1?0?0, TABLETTEN
     Route: 048
  9. CITALOPRAM [Suspect]
     Active Substance: CITALOPRAM HYDROBROMIDE
     Indication: PRODUCT USED FOR UNKNOWN INDICATION
     Dosage: 40 MILLIGRAM, QD, 1?0?0?0, TABLETTEN
     Route: 048
  10. BUDESONID [Concomitant]
     Active Substance: BUDESONIDE
     Dosage: 0.2 MILLIGRAM, BID, 1?0?1?0, DOSIERAEROSOL
     Route: 055
  11. COLECALCIFEROL [Concomitant]
     Active Substance: CHOLECALCIFEROL
     Dosage: 20000 INTERNATIONAL UNIT, 20.000 IE/2WOCHEN, 1X, KAPSELN
     Route: 048
  12. LEVOTHYROXINUM NATRICUM [Concomitant]
     Dosage: 150 MICROGRAM, QD, 1?0?0?0, TABLETTEN
     Route: 048
  13. ALLOPURINOL. [Concomitant]
     Active Substance: ALLOPURINOL
     Dosage: 100 MILLIGRAM, 2?0?0?0, TABLETTEN
     Route: 048

REACTIONS (7)
  - Electrolyte imbalance [Unknown]
  - Syncope [Unknown]
  - General physical health deterioration [Unknown]
  - Depressed level of consciousness [Unknown]
  - Amnesia [Unknown]
  - Fatigue [Unknown]
  - Cough [Unknown]
